FAERS Safety Report 18865653 (Version 1)
Quarter: 2021Q1

REPORT INFORMATION
  Report Type: Spontaneous
  Country: CA (occurrence: CA)
  Receive Date: 20210208
  Receipt Date: 20210208
  Transmission Date: 20210420
  Serious: Yes (Life-Threatening)
  Sender: FDA-Public Use
  Company Number: CA-JACOBUS PHARMACEUTICAL COMPANY, INC.-2106490

PATIENT
  Age: 44 Year
  Sex: Female

DRUGS (13)
  1. TETRACYCLINE HYDROCHLORIDE. [Concomitant]
     Active Substance: TETRACYCLINE HYDROCHLORIDE
  2. TRIAMCINOLONE ACETONIDE. [Concomitant]
     Active Substance: TRIAMCINOLONE ACETONIDE
  3. ZINC. [Concomitant]
     Active Substance: ZINC
  4. AUGMENTIN [Concomitant]
     Active Substance: AMOXICILLIN\CLAVULANATE POTASSIUM
  5. CLINDAMYCIN PHOSPHATE. [Concomitant]
     Active Substance: CLINDAMYCIN PHOSPHATE
  6. ERTAPENEM. [Concomitant]
     Active Substance: ERTAPENEM SODIUM
  7. MINOCYCLINE [Concomitant]
     Active Substance: MINOCYCLINE HYDROCHLORIDE
  8. PREDNISONE. [Concomitant]
     Active Substance: PREDNISONE
  9. RIFAMPICIN [Concomitant]
     Active Substance: RIFAMPIN
  10. DOXYCYCLINE. [Concomitant]
     Active Substance: DOXYCYCLINE
  11. DAPSONE. [Suspect]
     Active Substance: DAPSONE
     Indication: HIDRADENITIS
     Route: 065
  12. ISOTRETINOIN. [Concomitant]
     Active Substance: ISOTRETINOIN
  13. METRONIDAZOLE. [Concomitant]
     Active Substance: METRONIDAZOLE

REACTIONS (12)
  - Suicidal ideation [Unknown]
  - Wound secretion [Unknown]
  - Condition aggravated [Unknown]
  - Mobility decreased [Unknown]
  - Skin lesion [Unknown]
  - Skin odour abnormal [Unknown]
  - Scar [Unknown]
  - Treatment failure [Unknown]
  - Drug ineffective [Unknown]
  - Pain [Unknown]
  - Drug intolerance [Unknown]
  - Hidradenitis [Unknown]

NARRATIVE: CASE EVENT DATE: 20200605
